FAERS Safety Report 6618764-5 (Version None)
Quarter: 2010Q1

REPORT INFORMATION
  Report Type: 
  Country: None (occurrence: None)
  Receive Date: 20100305
  Receipt Date: 20100305
  Transmission Date: 20100710
  Serious: Yes (Other)
  Sender: FDA-Public Use
  Company Number: None

PATIENT
  Sex: Female
  Weight: 61.4 kg

DRUGS (9)
  1. ESTRACE [Suspect]
     Indication: SOFT TISSUE DISORDER
     Dosage: 1GM INTO VAGINA 3 TIMES PER WEEK 066
     Route: 067
     Dates: start: 20100128
  2. ESTRACE [Suspect]
     Indication: SOFT TISSUE DISORDER
     Dosage: 1GM INTO VAGINA 3 TIMES PER WEEK 066
     Route: 067
     Dates: start: 20100201
  3. CALCIUM/VIT D [Concomitant]
  4. METFORMIN HYDROCHLORIDE [Concomitant]
  5. ZOCOR [Concomitant]
  6. ZESTRIL [Concomitant]
  7. JANUVIA [Concomitant]
  8. FISH OIL [Concomitant]
  9. MULTI-VITAMIN [Concomitant]

REACTIONS (4)
  - APPLICATION SITE BURN [None]
  - BREAST TENDERNESS [None]
  - SENSORY LOSS [None]
  - VULVOVAGINAL DISORDER [None]
